FAERS Safety Report 14077542 (Version 1)
Quarter: 2017Q4

REPORT INFORMATION
  Report Type: Spontaneous
  Country: GB (occurrence: GB)
  Receive Date: 20171012
  Receipt Date: 20171012
  Transmission Date: 20180321
  Serious: Yes (Other)
  Sender: FDA-Public Use
  Company Number: GB-ASTRAZENECA-2017SF03537

PATIENT
  Age: 83 Year
  Sex: Female

DRUGS (5)
  1. PERINDOPRIL ERBUMINE. [Concomitant]
     Active Substance: PERINDOPRIL ERBUMINE
  2. BRILIQUE [Suspect]
     Active Substance: TICAGRELOR
     Indication: ACUTE MYOCARDIAL INFARCTION
     Dosage: 180.0MG UNKNOWN
     Route: 048
     Dates: start: 20170927, end: 20170927
  3. BENDROFLUMETHIAZIDE [Concomitant]
     Active Substance: BENDROFLUMETHIAZIDE
  4. BISOPROLOL FUMARATE. [Concomitant]
     Active Substance: BISOPROLOL FUMARATE
  5. ASPIRIN. [Concomitant]
     Active Substance: ASPIRIN

REACTIONS (2)
  - Respiratory rate increased [Unknown]
  - Dyspnoea [Not Recovered/Not Resolved]

NARRATIVE: CASE EVENT DATE: 20170927
